FAERS Safety Report 8135614-9 (Version None)
Quarter: 2012Q1

REPORT INFORMATION
  Report Type: 
  Country: None (occurrence: None)
  Receive Date: 20120214
  Receipt Date: 20120207
  Transmission Date: 20120608
  Serious: Yes (Other)
  Sender: FDA-Public Use
  Company Number: PHHY2012VE011994

PATIENT

DRUGS (1)
  1. EXFORGE [Suspect]
     Dosage: 1 DF (160/5 MG), UNK
     Route: 048

REACTIONS (1)
  - MACULE [None]
